FAERS Safety Report 18398024 (Version 1)
Quarter: 2020Q4

REPORT INFORMATION
  Report Type: Spontaneous
  Country: CA (occurrence: CA)
  Receive Date: 20201019
  Receipt Date: 20201019
  Transmission Date: 20210114
  Serious: Yes (Other)
  Sender: FDA-Public Use
  Company Number: CA-PFIZER INC-2020402325

PATIENT
  Sex: Male

DRUGS (1)
  1. HYDROMORPHONE HYDROCHLORIDE. [Suspect]
     Active Substance: HYDROMORPHONE HYDROCHLORIDE
     Indication: PAIN
     Route: 065

REACTIONS (7)
  - Drug dependence [Unknown]
  - Personality change [Unknown]
  - Drug withdrawal syndrome [Unknown]
  - Mood altered [Unknown]
  - Irritability [Unknown]
  - Pain [Unknown]
  - Drug abuse [Unknown]
